FAERS Safety Report 25147596 (Version 1)
Quarter: 2025Q2

REPORT INFORMATION
  Report Type: Spontaneous
  Country: US (occurrence: US)
  Receive Date: 20250402
  Receipt Date: 20250402
  Transmission Date: 20250717
  Serious: Yes (Hospitalization)
  Sender: NOVO NORDISK
  Company Number: US-NOVOPROD-1397089

PATIENT
  Age: 38 Year

DRUGS (2)
  1. LEVEMIR [Suspect]
     Active Substance: INSULIN DETEMIR
     Indication: Type 1 diabetes mellitus
     Dosage: 15 IU AM  AND 15 UNITS PM
     Route: 058
     Dates: start: 2005, end: 202501
  2. NOVOLOG [Suspect]
     Active Substance: INSULIN ASPART
     Indication: Type 1 diabetes mellitus
     Route: 058
     Dates: start: 1995

REACTIONS (1)
  - Diabetic foot [Recovered/Resolved]

NARRATIVE: CASE EVENT DATE: 20230101
